FAERS Safety Report 8288200-4 (Version None)
Quarter: 2012Q2

REPORT INFORMATION
  Report Type: 
  Country: None (occurrence: None)
  Receive Date: 20120411
  Receipt Date: 20120409
  Transmission Date: 20120825
  Serious: Yes (Life-Threatening, Hospitalization, Other)
  Sender: FDA-Public Use
  Company Number: ADR-2011-10554

PATIENT
  Age: 12 Year
  Sex: Male

DRUGS (1)
  1. LIORESAL [Suspect]
     Indication: MUSCLE SPASTICITY
     Dosage: 407.8 MCG, DAILY, INTRA
     Route: 037

REACTIONS (9)
  - BRADYCARDIA [None]
  - PYREXIA [None]
  - LETHARGY [None]
  - BACK PAIN [None]
  - MYDRIASIS [None]
  - OVERDOSE [None]
  - SOMNOLENCE [None]
  - HYPOTONIA [None]
  - HYPOPNOEA [None]
